FAERS Safety Report 6059800-7 (Version None)
Quarter: 2009Q1

REPORT INFORMATION
  Report Type: 
  Country: None (occurrence: None)
  Receive Date: 20090130
  Receipt Date: 20080717
  Transmission Date: 20090719
  Serious: No
  Sender: FDA-Public Use
  Company Number: US-ABBOTT-08P-163-0463395-00

PATIENT
  Sex: Male

DRUGS (1)
  1. LUPRON DEPOT [Suspect]
     Indication: PROSTATE CANCER
     Route: 030
     Dates: start: 20080615, end: 20080715

REACTIONS (4)
  - BURNING SENSATION [None]
  - HOT FLUSH [None]
  - TESTICULAR DISORDER [None]
  - VISUAL ACUITY REDUCED [None]
